FAERS Safety Report 7589106-6 (Version None)
Quarter: 2011Q3

REPORT INFORMATION
  Report Type: 
  Country: None (occurrence: None)
  Receive Date: 20110705
  Receipt Date: 20090702
  Transmission Date: 20111222
  Serious: Yes (Other)
  Sender: FDA-Public Use
  Company Number: US-BAYER-200920277NA

PATIENT
  Age: 42 Year
  Sex: Male
  Weight: 112.73 kg

DRUGS (31)
  1. MAGNEVIST [Suspect]
     Indication: NUCLEAR MAGNETIC RESONANCE IMAGING
     Dates: start: 20050513, end: 20050513
  2. CARBON DIOXIDE [Concomitant]
  3. TECHNETIUM (99M TC) OXIDRONATE [Concomitant]
     Indication: WHOLE BODY SCAN
     Dates: start: 20040209, end: 20040209
  4. MAGNEVIST [Suspect]
     Dosage: UNK, ONCE
     Dates: start: 20040713
  5. ROXANOL [Concomitant]
     Indication: PAIN
  6. TACROLIMUS [Concomitant]
     Dosage: 2 MG (DAILY DOSE), QD,
  7. CORTEF [Concomitant]
  8. PREDNISONE [Concomitant]
  9. VALGANCICLOVIR [Concomitant]
  10. PROGRAF [Concomitant]
  11. LASIX [Concomitant]
     Dosage: 80 MG (DAILY DOSE), QD,
  12. ULTRAVIST 150 [Concomitant]
  13. LEVOTHYROXINE SODIUM [Concomitant]
  14. CALCIUM CARBONATE [Concomitant]
  15. VALCYTE [Concomitant]
     Dosage: 450 MG (DAILY DOSE), QD,
  16. EPOGEN [Concomitant]
  17. PROMETHAZINE [Concomitant]
  18. NORVASC [Concomitant]
  19. ARANESP [Concomitant]
  20. SIMULECT [Concomitant]
  21. COUMADIN [Concomitant]
  22. MAGNEVIST [Suspect]
     Indication: VENOGRAM
     Dosage: WITH CARBON DIOXIDE
     Dates: start: 20040715, end: 20040715
  23. MAGNEVIST [Suspect]
     Indication: ANGIOGRAM
  24. PROZAC [Concomitant]
  25. FLEXERIL [Concomitant]
  26. PROCRIT [Concomitant]
  27. ABELCET [Concomitant]
  28. MS CONTIN [Concomitant]
     Indication: PAIN
  29. PHOSLO [Concomitant]
  30. CONTRAST MEDIA [Concomitant]
  31. CELLCEPT [Concomitant]

REACTIONS (15)
  - ARTHRALGIA [None]
  - RASH MACULAR [None]
  - MUSCULOSKELETAL PAIN [None]
  - JOINT RANGE OF MOTION DECREASED [None]
  - EXTREMITY CONTRACTURE [None]
  - PERONEAL NERVE PALSY [None]
  - RASH [None]
  - PAIN IN EXTREMITY [None]
  - SKIN ULCER [None]
  - SKIN HYPERTROPHY [None]
  - SKIN HYPERPIGMENTATION [None]
  - SKIN DISORDER [None]
  - NEPHROGENIC SYSTEMIC FIBROSIS [None]
  - OEDEMA PERIPHERAL [None]
  - SKIN INDURATION [None]
